FAERS Safety Report 19289177 (Version 3)
Quarter: 2021Q2

REPORT INFORMATION
  Report Type: Spontaneous
  Country: US (occurrence: US)
  Receive Date: 20210521
  Receipt Date: 20210621
  Transmission Date: 20210717
  Serious: Yes (Other)
  Sender: FDA-Public Use
  Company Number: NVSC2021US107434

PATIENT
  Sex: Female

DRUGS (2)
  1. ALPRAZOLAM. [Suspect]
     Active Substance: ALPRAZOLAM
     Dosage: 0.5 MG QD
     Route: 065
  2. ALPRAZOLAM. [Suspect]
     Active Substance: ALPRAZOLAM
     Indication: PRODUCT USED FOR UNKNOWN INDICATION
     Dosage: 1 MG, QD
     Route: 065

REACTIONS (10)
  - Disability [Unknown]
  - Hair disorder [Unknown]
  - Gait disturbance [Unknown]
  - Vertigo [Unknown]
  - Alopecia [Unknown]
  - Teeth brittle [Unknown]
  - Muscle tightness [Unknown]
  - Dependence [Unknown]
  - Skin burning sensation [Unknown]
  - Dizziness [Unknown]
